FAERS Safety Report 4746781-9 (Version None)
Quarter: 2005Q3

REPORT INFORMATION
  Report Type: 
  Country: None (occurrence: None)
  Receive Date: 20050815
  Receipt Date: 20050803
  Transmission Date: 20060218
  Serious: Yes (Hospitalization)
  Sender: FDA-Public Use
  Company Number: 2005105509

PATIENT
  Sex: Female
  Weight: 40 kg

DRUGS (6)
  1. OGEN [Suspect]
     Indication: ILL-DEFINED DISORDER
     Dosage: 1.25 MG (1.25 MG, DAILY),
     Dates: end: 20050708
  2. PHENYTOIN [Concomitant]
  3. LIPITOR [Concomitant]
  4. ASASANTIN (ACETYLSALICYLIC ACID, DIPYRIDAMOLE) [Concomitant]
  5. KARVEA (IRBESARTAN) [Concomitant]
  6. DILANTIN [Concomitant]

REACTIONS (2)
  - CEREBROVASCULAR ACCIDENT [None]
  - TRANSIENT ISCHAEMIC ATTACK [None]
